FAERS Safety Report 18099910 (Version 2)
Quarter: 2020Q3

REPORT INFORMATION
  Report Type: Spontaneous
  Country: US (occurrence: US)
  Receive Date: 20200731
  Receipt Date: 20200806
  Transmission Date: 20201103
  Serious: Yes (Other)
  Sender: FDA-Public Use
  Company Number: US-009507513-2007USA011284

PATIENT
  Age: 36 Year
  Sex: Female

DRUGS (2)
  1. NEXPLANON [Suspect]
     Active Substance: ETONOGESTREL
     Indication: CONTRACEPTION
     Dosage: 68 MILLIGRAM, ONCE (ONE TIME)
     Route: 059
     Dates: start: 201706, end: 20200731
  2. NEXPLANON [Suspect]
     Active Substance: ETONOGESTREL
     Dosage: (1 DOSAGE FORM) IMPLANT
     Route: 059
     Dates: start: 20200731

REACTIONS (3)
  - Incorrect product administration duration [Unknown]
  - Suicide threat [Unknown]
  - Emotional distress [Recovered/Resolved]

NARRATIVE: CASE EVENT DATE: 2020
